FAERS Safety Report 7468723-8 (Version None)
Quarter: 2011Q2

REPORT INFORMATION
  Report Type: 
  Country: None (occurrence: None)
  Receive Date: 20110510
  Receipt Date: 20110428
  Transmission Date: 20111010
  Serious: Yes (Hospitalization)
  Sender: FDA-Public Use
  Company Number: US-BIOGENIDEC-2011BI012454

PATIENT
  Age: 50 Year
  Sex: Female

DRUGS (1)
  1. TYSABRI [Suspect]
     Indication: MULTIPLE SCLEROSIS
     Route: 042
     Dates: start: 20090828, end: 20110204

REACTIONS (10)
  - PAIN [None]
  - FALL [None]
  - COGNITIVE DISORDER [None]
  - MULTIPLE SCLEROSIS RELAPSE [None]
  - ORAL INFECTION [None]
  - IMPAIRED DRIVING ABILITY [None]
  - PYREXIA [None]
  - FATIGUE [None]
  - MIGRAINE [None]
  - ROAD TRAFFIC ACCIDENT [None]
